FAERS Safety Report 21148300 (Version 3)
Quarter: 2022Q4

REPORT INFORMATION
  Report Type: Spontaneous
  Country: US (occurrence: US)
  Receive Date: 20220729
  Receipt Date: 20221008
  Transmission Date: 20230112
  Serious: No
  Sender: FDA-Public Use
  Company Number: US-BRISTOL-MYERS SQUIBB COMPANY-2022-082372

PATIENT
  Age: 70 Year
  Sex: Female

DRUGS (3)
  1. REVLIMID [Suspect]
     Active Substance: LENALIDOMIDE
     Indication: Plasma cell myeloma
     Dosage: TAKE ONE CAPSULE BY MOUTH DAILY
     Route: 048
     Dates: start: 20210202
  2. CORICIDIN [Concomitant]
     Route: 065
  3. DEXAMETHASONE [Concomitant]
     Active Substance: DEXAMETHASONE
     Route: 065

REACTIONS (4)
  - Diarrhoea [Unknown]
  - Muscle spasms [Unknown]
  - Skin discolouration [Unknown]
  - Dyspepsia [Unknown]

NARRATIVE: CASE EVENT DATE: 20221003
